FAERS Safety Report 23175877 (Version 2)
Quarter: 2023Q4

REPORT INFORMATION
  Report Type: Spontaneous
  Country: US (occurrence: US)
  Receive Date: 20231113
  Receipt Date: 20231222
  Transmission Date: 20240110
  Serious: No
  Sender: FDA-Public Use
  Company Number: US-AMGEN-USASP2023202121

PATIENT
  Age: 59 Year
  Sex: Female

DRUGS (2)
  1. REPATHA [Suspect]
     Active Substance: EVOLOCUMAB
     Indication: Blood cholesterol increased
     Dosage: 140 MILLIGRAM, Q2WK
     Route: 058
     Dates: start: 2021
  2. OZEMPIC [Concomitant]
     Active Substance: SEMAGLUTIDE
     Indication: Type 2 diabetes mellitus
     Dosage: 1 MILLIGRAM

REACTIONS (2)
  - Drug dose omission by device [Unknown]
  - Device difficult to use [Unknown]

NARRATIVE: CASE EVENT DATE: 20231110
